FAERS Safety Report 7884180-1 (Version None)
Quarter: 2011Q4

REPORT INFORMATION
  Report Type: 
  Country: None (occurrence: None)
  Receive Date: 20111102
  Receipt Date: 20111024
  Transmission Date: 20120403
  Serious: Yes (Other)
  Sender: FDA-Public Use
  Company Number: JP-GLAXOSMITHKLINE-B0758880A

PATIENT
  Age: 28 Year
  Sex: Female

DRUGS (5)
  1. ZOLOFT [Concomitant]
     Dosage: 75MG PER DAY
     Route: 048
     Dates: end: 20111020
  2. UNKNOWN DRUG [Concomitant]
     Dosage: 400MG PER DAY
     Route: 048
  3. LAMICTAL [Suspect]
     Dosage: 50MG PER DAY
     Route: 048
     Dates: start: 20111014, end: 20111020
  4. TOLEDOMIN [Concomitant]
     Dosage: 25MG PER DAY
     Route: 048
     Dates: start: 20111007, end: 20111022
  5. LAMICTAL [Suspect]
     Indication: BIPOLAR DISORDER
     Dosage: 25MG PER DAY
     Route: 048
     Dates: start: 20111007, end: 20111013

REACTIONS (4)
  - ORAL DISORDER [None]
  - BLISTER [None]
  - PYREXIA [None]
  - RASH GENERALISED [None]
